FAERS Safety Report 8984946 (Version 1)
Quarter: 2012Q4

REPORT INFORMATION
  Report Type: 
  Country: US (occurrence: US)
  Receive Date: 20121226
  Receipt Date: 20121226
  Transmission Date: 20130627
  Serious: Yes (Disabling)
  Sender: FDA-Public Use
  Company Number: PHEH2012US022732

PATIENT
  Age: 54 Year
  Sex: Male

DRUGS (1)
  1. GILENYA [Suspect]
     Indication: MULTIPLE SCLEROSIS
     Dosage: 0.5 mg, QD
     Route: 048
     Dates: start: 20121019, end: 20121120

REACTIONS (5)
  - Uveitis [Not Recovered/Not Resolved]
  - Eye inflammation [Unknown]
  - Macular oedema [Recovering/Resolving]
  - Visual impairment [Unknown]
  - Vision blurred [Unknown]
